FAERS Safety Report 24857522 (Version 3)
Quarter: 2025Q1

REPORT INFORMATION
  Report Type: Spontaneous
  Country: US (occurrence: US)
  Receive Date: 20250117
  Receipt Date: 20250203
  Transmission Date: 20250409
  Serious: No
  Sender: PFIZER
  Company Number: US-PFIZER INC-202500007064

PATIENT
  Age: 78 Year
  Sex: Male
  Weight: 72.57 kg

DRUGS (3)
  1. PAXLOVID [Suspect]
     Active Substance: NIRMATRELVIR\RITONAVIR
     Indication: COVID-19 treatment
     Dosage: REPORTED AS 300/100 MILLIGRAM, 2X/DAY
     Route: 048
     Dates: start: 20241216, end: 20241221
  2. LEVOTHYROXINE [Concomitant]
     Active Substance: LEVOTHYROXINE
     Indication: Hypothyroidism
  3. ALBUTEROL [Concomitant]
     Active Substance: ALBUTEROL

REACTIONS (2)
  - COVID-19 [Unknown]
  - Faeces soft [Recovering/Resolving]
